FAERS Safety Report 10866565 (Version 2)
Quarter: 2015Q1

REPORT INFORMATION
  Report Type: Spontaneous
  Country: JP (occurrence: None)
  Receive Date: 20150220
  Receipt Date: 20150302
  Transmission Date: 20150721
  Serious: Yes (Hospitalization, Other)
  Sender: FDA-Public Use
  Company Number: 2015-000225

PATIENT
  Age: 42 Year
  Sex: Female

DRUGS (4)
  1. THYRONAMIN (LIOTHYRONINE SODIUM) [Concomitant]
  2. ACTONEL [Suspect]
     Active Substance: RISEDRONATE SODIUM
     Indication: OSTEOPOROSIS POSTMENOPAUSAL
     Dosage: TOOK ONE DOSE ONLY
     Route: 048
     Dates: start: 20141217, end: 20141217
  3. CORTRIL /00028601/ (HYDROCORTISONE) [Concomitant]
  4. PRAVASTATIN SODIUM (PRAVASTATIN SODIUM) [Concomitant]

REACTIONS (11)
  - Adrenal insufficiency [None]
  - Abdominal discomfort [None]
  - Decreased appetite [None]
  - Condition aggravated [None]
  - Headache [None]
  - Pyrexia [None]
  - Nausea [None]
  - Acute phase reaction [None]
  - Chills [None]
  - Influenza like illness [None]
  - Abdominal pain upper [None]

NARRATIVE: CASE EVENT DATE: 20141217
